FAERS Safety Report 4771158-X (Version None)
Quarter: 2005Q3

REPORT INFORMATION
  Report Type: 
  Country: None (occurrence: None)
  Receive Date: 20050914
  Receipt Date: 20050908
  Transmission Date: 20060218
  Serious: Yes (Hospitalization)
  Sender: FDA-Public Use
  Company Number: 2005-09-0297

PATIENT
  Age: 46 Year
  Sex: Male

DRUGS (1)
  1. PEG-INTRON [Suspect]
     Dosage: SUBCUTANEOUS
     Route: 058
     Dates: start: 20050201

REACTIONS (10)
  - ASTHENIA [None]
  - BLOOD PRESSURE INCREASED [None]
  - BODY TEMPERATURE INCREASED [None]
  - CHEST PAIN [None]
  - HEART RATE INCREASED [None]
  - HYPOAESTHESIA [None]
  - HYPOAESTHESIA ORAL [None]
  - PHARMACEUTICAL PRODUCT COMPLAINT [None]
  - POOR QUALITY DRUG ADMINISTERED [None]
  - TREMOR [None]
